FAERS Safety Report 4425067-6 (Version None)
Quarter: 2004Q3

REPORT INFORMATION
  Report Type: 
  Country: None (occurrence: None)
  Receive Date: 20040811
  Receipt Date: 20040811
  Transmission Date: 20050211
  Serious: Yes (Hospitalization)
  Sender: FDA-Public Use
  Company Number: None

PATIENT
  Age: 64 Year
  Sex: Female
  Weight: 59.8294 kg

DRUGS (17)
  1. FLUOROURACIL [Suspect]
     Indication: ANAL CANCER STAGE II
     Dosage: 1000MG/M2   DAILYX4   INTRAVENOUS
     Route: 042
     Dates: start: 20040413, end: 20040710
  2. CISPLATIN [Suspect]
     Indication: ANAL CANCER STAGE II
     Dosage: 75 MG/M2   DAILYX1   INTRAVENOUS
     Route: 042
     Dates: start: 20040413, end: 20040706
  3. DIGOXIN [Concomitant]
  4. COUMADIN [Concomitant]
  5. VICODIN ES [Concomitant]
  6. DURAGESIC [Concomitant]
  7. REGLAN [Concomitant]
  8. NEUPOGEN [Concomitant]
  9. LOMOTIL [Concomitant]
  10. PROCRIT [Concomitant]
  11. PYRIDIUM [Concomitant]
  12. BACTRIM DS [Concomitant]
  13. ZOFRAN [Concomitant]
  14. COMPAZINE [Concomitant]
  15. ATIVAN [Concomitant]
  16. LEVAQUIN [Concomitant]
  17. XENADERM [Concomitant]

REACTIONS (16)
  - ABDOMINAL PAIN [None]
  - ANAEMIA [None]
  - ANOREXIA [None]
  - DEHYDRATION [None]
  - DRUG TOXICITY [None]
  - FATIGUE [None]
  - HYPOALBUMINAEMIA [None]
  - INFECTION [None]
  - LEUKOPENIA [None]
  - NAUSEA [None]
  - NEUTROPENIA [None]
  - PROCTALGIA [None]
  - PROCTITIS [None]
  - RADIATION SKIN INJURY [None]
  - THROMBOCYTOPENIA [None]
  - VOMITING [None]
